FAERS Safety Report 5313063-6 (Version None)
Quarter: 2007Q1

REPORT INFORMATION
  Report Type: 
  Country: None (occurrence: None)
  Receive Date: 20070201
  Receipt Date: 20061019
  Transmission Date: 20070707
  Serious: No
  Sender: FDA-Public Use
  Company Number: VNL_0243_2006

PATIENT
  Age: 76 Year
  Sex: Female
  Weight: 70.7611 kg

DRUGS (9)
  1. APOKYN [Suspect]
     Indication: PARKINSON'S DISEASE
     Dosage: ML 4 - 5X/DAY SC
     Route: 058
     Dates: start: 20060901
  2. BACLOFEN [Concomitant]
  3. TOPROL-XL [Concomitant]
  4. RESTORIL [Concomitant]
  5. SINEMET [Concomitant]
  6. TIGAN [Concomitant]
  7. NEUROFEN [Concomitant]
  8. HYDROCHLOROTHIAZIDE [Concomitant]
  9. POTASSIUM ACETATE [Concomitant]

REACTIONS (3)
  - HYPERHIDROSIS [None]
  - INJECTION SITE BRUISING [None]
  - OEDEMA PERIPHERAL [None]
